FAERS Safety Report 12517508 (Version 2)
Quarter: 2016Q4

REPORT INFORMATION
  Report Type: Spontaneous
  Country: JP (occurrence: JP)
  Receive Date: 20160630
  Receipt Date: 20161026
  Transmission Date: 20170207
  Serious: Yes (Hospitalization)
  Sender: FDA-Public Use
  Company Number: JP-JNJFOC-20160624478

PATIENT
  Age: 92 Year
  Sex: Female
  Weight: 40 kg

DRUGS (10)
  1. VERAPAMIL HYDROCHLORIDE. [Concomitant]
     Active Substance: VERAPAMIL HYDROCHLORIDE
  2. ARICEPT [Concomitant]
     Active Substance: DONEPEZIL HYDROCHLORIDE
     Route: 065
  3. DIPYRIDAMOLE. [Concomitant]
     Active Substance: DIPYRIDAMOLE
     Route: 065
  4. NORVASC [Concomitant]
     Active Substance: AMLODIPINE BESYLATE
     Route: 065
  5. DIGOSIN [Concomitant]
     Active Substance: DIGOXIN
     Route: 065
  6. CARDENALIN [Concomitant]
     Active Substance: DOXAZOSIN MESYLATE
     Route: 065
  7. RIVAROXABAN [Suspect]
     Active Substance: RIVAROXABAN
     Indication: ATRIAL FIBRILLATION
     Route: 048
  8. DIPYRIDAMOLE. [Concomitant]
     Active Substance: DIPYRIDAMOLE
     Route: 065
  9. NESINA [Concomitant]
     Active Substance: ALOGLIPTIN BENZOATE
     Route: 065
  10. LASIX [Concomitant]
     Active Substance: FUROSEMIDE
     Route: 065

REACTIONS (2)
  - Embolic stroke [Recovering/Resolving]
  - Cerebellar haemorrhage [Recovering/Resolving]

NARRATIVE: CASE EVENT DATE: 20151109
